FAERS Safety Report 23775908 (Version 3)
Quarter: 2024Q2

REPORT INFORMATION
  Report Type: Spontaneous
  Country: CA (occurrence: CA)
  Receive Date: 20240424
  Receipt Date: 20240517
  Transmission Date: 20240716
  Serious: Yes (Hospitalization, Other)
  Sender: FDA-Public Use
  Company Number: CA-SANDOZ-SDZ2024CA041017

PATIENT
  Sex: Female

DRUGS (1)
  1. ERELZI [Suspect]
     Active Substance: ETANERCEPT-SZZS
     Indication: Rheumatoid arthritis
     Dosage: 50 MG, QW
     Route: 058
     Dates: start: 20231223

REACTIONS (10)
  - Seasonal allergy [Unknown]
  - Dyspnoea [Unknown]
  - Cardiac failure [Unknown]
  - Loss of consciousness [Unknown]
  - Electric shock sensation [Unknown]
  - Fall [Unknown]
  - Rhinitis [Unknown]
  - Fatigue [Unknown]
  - Gait disturbance [Unknown]
  - Therapy interrupted [Unknown]
